FAERS Safety Report 15956897 (Version 1)
Quarter: 2019Q1

REPORT INFORMATION
  Report Type: Spontaneous
  Country: US (occurrence: US)
  Receive Date: 20190123
  Receipt Date: 20190123
  Transmission Date: 20190417
  Serious: No
  Sender: FDA-Public Use
  Company Number: None

PATIENT
  Age: 49 Year
  Sex: Female

DRUGS (2)
  1. TACROLIMUS CAP [Suspect]
     Active Substance: TACROLIMUS
     Dates: start: 201802
  2. MYCOPHENOLATE [Suspect]
     Active Substance: MYCOPHENOLIC ACID

REACTIONS (1)
  - Alopecia [None]
